FAERS Safety Report 8577102-1 (Version None)
Quarter: 2012Q3

REPORT INFORMATION
  Report Type: 
  Country: None (occurrence: None)
  Receive Date: 20120807
  Receipt Date: 20120731
  Transmission Date: 20120928
  Serious: Yes (Other)
  Sender: FDA-Public Use
  Company Number: US-BAXTER-2012BAX010175

PATIENT
  Sex: Male
  Weight: 36.36 kg

DRUGS (4)
  1. ADVATE [Suspect]
     Dosage: 1639 UNITS
     Route: 042
     Dates: start: 20040101
  2. NOVOSEVEN [Suspect]
     Route: 042
  3. ADVATE [Suspect]
     Route: 042
     Dates: start: 20040201, end: 20040201
  4. ADVATE [Suspect]
     Indication: FACTOR VIII INHIBITION
     Route: 042
     Dates: start: 20040201

REACTIONS (1)
  - DEVICE RELATED INFECTION [None]
